FAERS Safety Report 7123680-9 (Version None)
Quarter: 2010Q4

REPORT INFORMATION
  Report Type: 
  Country: None (occurrence: None)
  Receive Date: 20101125
  Receipt Date: 20101110
  Transmission Date: 20110411
  Serious: Yes (Hospitalization)
  Sender: FDA-Public Use
  Company Number: PHHY2010US70378

PATIENT
  Sex: Female
  Weight: 76 kg

DRUGS (1)
  1. EXJADE [Suspect]
     Indication: CHRONIC MYELOID LEUKAEMIA
     Dosage: 1500 MG, UNK
     Route: 048
     Dates: start: 20101001

REACTIONS (6)
  - ARTHRALGIA [None]
  - BLISTER [None]
  - HYPERSENSITIVITY [None]
  - RASH [None]
  - SWELLING [None]
  - URTICARIA [None]
